FAERS Safety Report 5323607-6 (Version None)
Quarter: 2007Q2

REPORT INFORMATION
  Report Type: 
  Country: None (occurrence: None)
  Receive Date: 20070508
  Receipt Date: 20070426
  Transmission Date: 20071010
  Serious: Yes (Death)
  Sender: FDA-Public Use
  Company Number: 2007US000982

PATIENT
  Age: 70 Year
  Sex: Male
  Weight: 136.1 kg

DRUGS (1)
  1. AMEVIVE [Suspect]
     Indication: PSORIASIS
     Dosage: WEEKLY,  INTRAMUSCULAR
     Route: 030
     Dates: start: 20041018

REACTIONS (1)
  - DEATH [None]
